FAERS Safety Report 13156109 (Version 2)
Quarter: 2017Q1

REPORT INFORMATION
  Report Type: Spontaneous
  Country: HU (occurrence: HU)
  Receive Date: 20170126
  Receipt Date: 20170301
  Transmission Date: 20170428
  Serious: Yes (Death, Hospitalization)
  Sender: FDA-Public Use
  Company Number: HU-PFIZER INC-2017035910

PATIENT
  Age: 67 Year
  Sex: Male

DRUGS (12)
  1. ROSUVASTATIN. [Concomitant]
     Active Substance: ROSUVASTATIN
     Dosage: UNK
  2. TRITACE [Concomitant]
     Active Substance: RAMIPRIL
     Dosage: UNK
  3. MEDROL [Concomitant]
     Active Substance: METHYLPREDNISOLONE
     Dosage: UNK
  4. CERUCAL [Concomitant]
     Active Substance: METOCLOPRAMIDE HYDROCHLORIDE
     Dosage: UNK
  5. STADALAX [Concomitant]
     Active Substance: BISACODYL
     Dosage: UNK
  6. XALKORI [Suspect]
     Active Substance: CRIZOTINIB
     Indication: NON-SMALL CELL LUNG CANCER
     Dosage: 250 MG, 2X/DAY
     Route: 048
     Dates: start: 20161212
  7. DUROGESIC [Concomitant]
     Active Substance: FENTANYL
     Dosage: UNK
  8. SORBIFER DURULES [Concomitant]
     Active Substance: FERROUS SULFATE
     Dosage: UNK
  9. NEBILET [Concomitant]
     Active Substance: NEBIVOLOL
     Dosage: UNK
  10. DIFLAM [Concomitant]
     Dosage: UNK
  11. CONTRAMAL [Concomitant]
     Active Substance: TRAMADOL HYDROCHLORIDE
     Dosage: UNK
  12. DICYNONE [Concomitant]
     Active Substance: ETHAMSYLATE
     Dosage: UNK

REACTIONS (6)
  - Decreased appetite [Recovering/Resolving]
  - Constipation [Recovering/Resolving]
  - Asthenia [Recovering/Resolving]
  - Death [Fatal]
  - Rales [Recovering/Resolving]
  - Dyspnoea [Recovering/Resolving]
